FAERS Safety Report 7577727-6 (Version None)
Quarter: 2011Q2

REPORT INFORMATION
  Report Type: 
  Country: None (occurrence: None)
  Receive Date: 20110628
  Receipt Date: 20110623
  Transmission Date: 20111010
  Serious: Yes (Death)
  Sender: FDA-Public Use
  Company Number: EG-PFIZER INC-2011139905

PATIENT
  Age: 28 Year
  Sex: Female

DRUGS (2)
  1. VFEND [Suspect]
     Indication: ANTIFUNGAL TREATMENT
     Dosage: 400 MG, 2X/DAY
     Route: 041
     Dates: start: 20110621, end: 20110621
  2. VFEND [Suspect]
     Dosage: 200 MG, 1X/DAY
     Route: 041
     Dates: start: 20110622

REACTIONS (2)
  - NEOPLASM MALIGNANT [None]
  - DISEASE PROGRESSION [None]
